FAERS Safety Report 13757646 (Version 1)
Quarter: 2017Q3

REPORT INFORMATION
  Report Type: Report from Study
  Country: BR (occurrence: BR)
  Receive Date: 20170717
  Receipt Date: 20170717
  Transmission Date: 20171127
  Serious: Yes (Death)
  Sender: FDA-Public Use
  Company Number: BR-ACCORD-053514

PATIENT
  Age: 70 Year

DRUGS (3)
  1. FLUOROURACIL. [Suspect]
     Active Substance: FLUOROURACIL
     Indication: COLORECTAL CANCER STAGE III
     Dosage: PATIENT RECEIVED WEEKLY, AT WEEKS 1, 2, 3, 4, 5 AND 6, AT EVERY 8 WEEKS, FOR 3 CYCLES
     Route: 040
  2. FOLINIC ACID [Suspect]
     Active Substance: LEUCOVORIN
     Indication: COLORECTAL CANCER STAGE III
     Dosage: I.V., BOLUS WEEKLY, AT WEEKS 1, 2, 3, 4, 5,?AND 6, AT EVERY 8 WEEKS, FOR 3 CYCLES
  3. OXALIPLATIN. [Suspect]
     Active Substance: OXALIPLATIN
     Indication: COLORECTAL CANCER STAGE III
     Dosage: OVER 2 HOURS WEEKLY, AT WEEKS 1, 3, AND 5, EVERY 8 WEEKS, FOR 3 CYCLES
     Route: 042

REACTIONS (3)
  - Acidosis [Fatal]
  - Sepsis [Fatal]
  - Diarrhoea [Fatal]
